FAERS Safety Report 7077870-4 (Version None)
Quarter: 2010Q4

REPORT INFORMATION
  Report Type: 
  Country: None (occurrence: None)
  Receive Date: 20101101
  Receipt Date: 20101025
  Transmission Date: 20110411
  Serious: Yes (Hospitalization, Other)
  Sender: FDA-Public Use
  Company Number: US-US-EMD SERONO, INC.-7005959

PATIENT
  Sex: Female

DRUGS (11)
  1. REBIF [Suspect]
     Indication: MULTIPLE SCLEROSIS
     Route: 058
     Dates: start: 20040101
  2. SOLU-MEDROL [Suspect]
     Indication: MULTIPLE SCLEROSIS RELAPSE
     Dates: start: 20071101, end: 20071101
  3. SOLU-MEDROL [Suspect]
     Dates: start: 20071201, end: 20071201
  4. SOLU-MEDROL [Suspect]
     Dates: start: 20080101, end: 20080101
  5. SOLU-MEDROL [Suspect]
     Dates: start: 20100901, end: 20100901
  6. PREDNISONE [Suspect]
     Indication: MULTIPLE SCLEROSIS RELAPSE
     Dates: start: 20071101, end: 20071101
  7. PREDNISONE [Suspect]
     Dates: start: 20071201, end: 20071201
  8. PREDNISONE [Suspect]
     Dates: start: 20080101, end: 20080101
  9. VICODIN [Concomitant]
  10. MORPHINE [Concomitant]
     Indication: PAIN
  11. PAXIL [Concomitant]
     Indication: DEPRESSION

REACTIONS (7)
  - BIPOLAR DISORDER [None]
  - BRONCHITIS [None]
  - FATIGUE [None]
  - INJECTION SITE ERYTHEMA [None]
  - MULTIPLE SCLEROSIS RELAPSE [None]
  - MYALGIA [None]
  - SINUSITIS [None]
